FAERS Safety Report 5532776-4 (Version None)
Quarter: 2007Q4

REPORT INFORMATION
  Report Type: 
  Country: None (occurrence: None)
  Receive Date: 20071130
  Receipt Date: 20071130
  Transmission Date: 20080405
  Serious: Yes (Life-Threatening, Hospitalization)
  Sender: FDA-Public Use
  Company Number: None

PATIENT
  Sex: Male
  Weight: 117.9352 kg

DRUGS (1)
  1. CHANTIX [Suspect]
     Indication: SMOKING CESSATION THERAPY
     Dosage: 0.5/1MG STARTER PAK, TO 1 MG BID PO
     Route: 048
     Dates: start: 20070913, end: 20071018

REACTIONS (6)
  - CONCUSSION [None]
  - DEPRESSION [None]
  - HALLUCINATION, AUDITORY [None]
  - IMPULSIVE BEHAVIOUR [None]
  - ROAD TRAFFIC ACCIDENT [None]
  - SUICIDAL IDEATION [None]
